FAERS Safety Report 26032358 (Version 1)
Quarter: 2025Q4

REPORT INFORMATION
  Report Type: Spontaneous
  Country: EU (occurrence: EU)
  Receive Date: 20251112
  Receipt Date: 20251112
  Transmission Date: 20260118
  Serious: Yes (Death, Life-Threatening, Other)
  Sender: SANDOZ
  Company Number: EU-002147023-NVSC2022PL254406

PATIENT
  Age: 9 Year
  Sex: Male

DRUGS (10)
  1. LAPINE T-LYMPHOCYTE IMMUNE GLOBULIN [Suspect]
     Active Substance: LAPINE T-LYMPHOCYTE IMMUNE GLOBULIN
     Indication: Immunosuppressant drug therapy
     Dosage: 45 MG/KG (MILLIGRAM PER KILOGRAM) AT A  TOTAL DOSE OF 45 MG/KG BW
     Route: 065
  2. LAPINE T-LYMPHOCYTE IMMUNE GLOBULIN [Suspect]
     Active Substance: LAPINE T-LYMPHOCYTE IMMUNE GLOBULIN
     Indication: Allogenic stem cell transplantation
  3. CYCLOSPORINE [Suspect]
     Active Substance: CYCLOSPORINE
     Indication: Prophylaxis against graft versus host disease
     Dosage: UNK, ON PRETRANSPLANTATION DAY MINUS 1
     Route: 065
  4. ETOPOSIDE [Suspect]
     Active Substance: ETOPOSIDE
     Indication: Allogenic stem cell transplantation
     Dosage: 60 MG/KG BW
     Route: 065
  5. ETOPOSIDE [Suspect]
     Active Substance: ETOPOSIDE
     Indication: Immunosuppressant drug therapy
  6. METHOTREXATE SODIUM [Suspect]
     Active Substance: METHOTREXATE SODIUM
     Indication: Prophylaxis against graft versus host disease
     Dosage: UNK, POST-TRANSPLANTATION DAYS PLUS 1, PLUS 3 AND PLUS 6
     Route: 065
  7. MYCOPHENOLATE MOFETIL [Suspect]
     Active Substance: MYCOPHENOLATE MOFETIL
     Indication: Prophylaxis against graft versus host disease
     Dosage: 40 MG/KG, BIW, STARTING ON DAY PLUS 17
     Route: 065
  8. MYCOPHENOLATE MOFETIL [Suspect]
     Active Substance: MYCOPHENOLATE MOFETIL
     Dosage: UNK, PRETRANSPLANTATION DAY -1 TO DAY +62
     Route: 065
  9. VEDOLIZUMAB [Suspect]
     Active Substance: VEDOLIZUMAB
     Indication: Graft versus host disease in skin
     Dosage: UNK, AT +88 DAYS POST TRANSPLANTATION, VEDOLIZUMAB WAS STARTED AND WAS ADMINISTERED TWICE (ON DAYS +
     Route: 065
  10. VEDOLIZUMAB [Suspect]
     Active Substance: VEDOLIZUMAB
     Indication: Graft versus host disease in gastrointestinal tract

REACTIONS (10)
  - Burkitt^s lymphoma recurrent [Fatal]
  - Acute graft versus host disease in intestine [Unknown]
  - Graft versus host disease [Unknown]
  - Mucosal inflammation [Unknown]
  - Acute graft versus host disease in skin [Unknown]
  - Angiopathy [Unknown]
  - Posterior reversible encephalopathy syndrome [Unknown]
  - Graft versus host disease in gastrointestinal tract [Unknown]
  - Pyrexia [Unknown]
  - Product use in unapproved indication [Unknown]
